FAERS Safety Report 7397202-1 (Version None)
Quarter: 2011Q2

REPORT INFORMATION
  Report Type: 
  Country: None (occurrence: None)
  Receive Date: 20110406
  Receipt Date: 20110326
  Transmission Date: 20111010
  Serious: No
  Sender: FDA-Public Use
  Company Number: US-B.I. PHARMACEUTICALS,INC./RIDGEFIELD-2011-BP-09272BP

PATIENT
  Sex: Male

DRUGS (2)
  1. MIRAPEX [Concomitant]
     Indication: PARKINSON'S DISEASE
  2. PRADAXA [Suspect]
     Indication: ATRIAL FIBRILLATION
     Dosage: 300 MG
     Route: 048
     Dates: start: 20110324

REACTIONS (2)
  - FLATULENCE [None]
  - DYSPEPSIA [None]
